FAERS Safety Report 10219411 (Version 2)
Quarter: 2014Q2

REPORT INFORMATION
  Report Type: Spontaneous
  Country: US (occurrence: US)
  Receive Date: 20140605
  Receipt Date: 20140605
  Transmission Date: 20141212
  Serious: Yes (Other)
  Sender: FDA-Public Use
  Company Number: US-JNJFOC-20140503758

PATIENT
  Age: 85 Year
  Sex: Female
  Weight: 52.16 kg

DRUGS (11)
  1. VITAMINE [Concomitant]
     Route: 065
  2. VITAMIN C [Concomitant]
     Route: 065
  3. VITAMIN D3 [Concomitant]
     Route: 065
  4. XARELTO [Suspect]
     Indication: DEEP VEIN THROMBOSIS
     Route: 048
     Dates: start: 20140220
  5. ARICEPT [Concomitant]
     Dosage: 1.5 TABLETS ONCE A DAY AT BED TIME
     Route: 065
  6. CALTRATE + D [Concomitant]
     Route: 065
  7. OMEPRAZOLE [Concomitant]
     Route: 065
  8. LIPITOR [Concomitant]
     Route: 065
  9. CENTRUM SILVER MULTIVITAMINS [Concomitant]
     Route: 065
  10. NAMENDA [Concomitant]
     Route: 065
  11. FUROSEMIDE [Concomitant]
     Route: 065

REACTIONS (5)
  - Syncope [Recovered/Resolved]
  - Gastrointestinal haemorrhage [Unknown]
  - Haemoglobin decreased [Recovered/Resolved]
  - Oesophageal ulcer [Unknown]
  - Hiatus hernia [Unknown]
